FAERS Safety Report 24569125 (Version 3)
Quarter: 2024Q4

REPORT INFORMATION
  Report Type: Report from Study
  Country: IT (occurrence: IT)
  Receive Date: 20241031
  Receipt Date: 20241120
  Transmission Date: 20250115
  Serious: No
  Sender: ROCHE
  Company Number: IT-ROCHE-10000121016

PATIENT
  Age: 26 Year
  Sex: Female

DRUGS (1)
  1. OCRELIZUMAB [Suspect]
     Active Substance: OCRELIZUMAB
     Indication: Relapsing-remitting multiple sclerosis
     Dosage: DRUG ADMINISTRATION ON 23/JUL/2024?DOSE OF LAST OCRELIZUMAB ADMINISTERED PRIOR TO AE?ONSET 600 MG
     Route: 042
     Dates: start: 20230705

REACTIONS (1)
  - Vulvovaginal candidiasis [Recovered/Resolved]

NARRATIVE: CASE EVENT DATE: 20241015
